FAERS Safety Report 8587864 (Version 3)
Quarter: 2015Q1

REPORT INFORMATION
  Report Type: Report from Study
  Country: CA (occurrence: CA)
  Receive Date: 20120531
  Receipt Date: 20150204
  Transmission Date: 20150721
  Serious: Yes (Disabling, Other)
  Sender: FDA-Public Use
  Company Number: JP-ASTRAZENECA-2012SE34095

PATIENT
  Age: 45 Year
  Sex: Female
  Weight: 20.4 kg

DRUGS (37)
  1. CAPRELSA [Suspect]
     Active Substance: VANDETANIB
     Indication: MEDULLARY THYROID CANCER
     Route: 048
     Dates: start: 2013, end: 20131110
  2. LOPERAMIDE [Concomitant]
     Active Substance: LOPERAMIDE
     Dosage: 2 MG QID PRN
  3. CODEINE [Concomitant]
     Active Substance: CODEINE
     Dosage: 25 MG/1 ML, 3 ML Q6H PRN
     Dates: start: 20121022
  4. ALESSE 28 [Concomitant]
     Active Substance: ETHINYL ESTRADIOL\LEVONORGESTREL
     Dosage: 25 MG/1 ML, 3 ML Q6H PRN
     Dates: start: 20121022
  5. AREDIA [Concomitant]
     Active Substance: PAMIDRONATE DISODIUM
     Indication: DRUG THERAPY
  6. CAPRELSA [Suspect]
     Active Substance: VANDETANIB
     Indication: MEDULLARY THYROID CANCER
     Route: 048
     Dates: start: 20120507, end: 20120707
  7. HYDERM [Concomitant]
     Dosage: 1 % TO FACE PRN
  8. MAGIC MOUTH WASH [Concomitant]
     Active Substance: ALUMINUM HYDROXIDE\DIMETHICONE\DIPHENHYDRAMINE\HYDROXIDE ION\LIDOCAINE
     Dosage: 25 MG/1 ML, 3 ML Q6H PRN
     Dates: start: 20121022
  9. CAPRELSA [Suspect]
     Active Substance: VANDETANIB
     Indication: MEDULLARY THYROID CANCER
     Route: 048
     Dates: start: 2013, end: 20130619
  10. DOM ZOPICLONE [Concomitant]
     Dosage: 0.5 DF DAILY AT NIGHT AS REQUIRED
  11. GRAVOL [Concomitant]
     Active Substance: DIMENHYDRINATE
     Dosage: AS NEEDED
  12. PANTOPRAZOLE [Concomitant]
     Active Substance: PANTOPRAZOLE SODIUM
  13. CRAVOL [Concomitant]
     Dosage: AS REQUIRED
  14. MAXALT [Concomitant]
     Active Substance: RIZATRIPTAN BENZOATE
  15. AMLODIPINE [Concomitant]
     Active Substance: AMLODIPINE BESYLATE
  16. RATIO-ECTOSONE [Concomitant]
     Active Substance: BETAMETHASONE VALERATE
     Dosage: 1 % TO SCALP
  17. NEUTRAGEL [Concomitant]
  18. MAGNESIUM [Concomitant]
     Active Substance: MAGNESIUM
  19. CETAPHIL [Concomitant]
     Active Substance: AVOBENZONE\OCTOCRYLENE\TRICLOSAN
     Dosage: PROT B.KARITECR TOP APPLY REGULARLY TO HANDS
  20. CAPRELSA [Suspect]
     Active Substance: VANDETANIB
     Indication: MEDULLARY THYROID CANCER
     Route: 048
     Dates: start: 20120727, end: 20120814
  21. CAPRELSA [Suspect]
     Active Substance: VANDETANIB
     Indication: MEDULLARY THYROID CANCER
     Route: 048
     Dates: start: 20120913, end: 20121202
  22. CAPRELSA [Suspect]
     Active Substance: VANDETANIB
     Indication: MEDULLARY THYROID CANCER
     Route: 048
     Dates: start: 20121203, end: 20121212
  23. CAPRELSA [Suspect]
     Active Substance: VANDETANIB
     Indication: MEDULLARY THYROID CANCER
     Route: 048
     Dates: start: 201311, end: 20140908
  24. CAPRELSA [Suspect]
     Active Substance: VANDETANIB
     Indication: MEDULLARY THYROID CANCER
     Route: 048
     Dates: start: 2014, end: 20150114
  25. AMLODIPINE [Concomitant]
     Active Substance: AMLODIPINE BESYLATE
  26. SYNTHROID [Concomitant]
     Active Substance: LEVOTHYROXINE SODIUM
  27. FLUOR/SODIUM [Concomitant]
  28. AMLODIPINE [Concomitant]
     Active Substance: AMLODIPINE BESYLATE
     Dates: start: 20120611
  29. SYNTHROID [Concomitant]
     Active Substance: LEVOTHYROXINE SODIUM
     Dates: start: 20120727
  30. PRO CAL D [Concomitant]
     Dosage: 500MG/400UI TWO TIMES PER DAY
  31. K-DUR [Concomitant]
     Active Substance: POTASSIUM CHLORIDE
  32. IMODIUM [Concomitant]
     Active Substance: LOPERAMIDE HYDROCHLORIDE
     Dosage: 2 DOSES/ONE OR TWO DOSES PER DAY
  33. TARO MUPIROCIN [Concomitant]
     Dosage: 2% ONG TOP TAR APPLY TWO TIMES PER DAY
  34. DALACIN [Concomitant]
     Active Substance: CLINDAMYCIN\CLINDAMYCIN PHOSPHATE
     Route: 061
  35. SYNTHROID [Concomitant]
     Active Substance: LEVOTHYROXINE SODIUM
     Dates: start: 20120613
  36. APO PANTOPRAZOLE [Concomitant]
  37. PMS NYSTATIN [Concomitant]
     Dosage: 100000 UNIT/ML

REACTIONS (28)
  - Electrocardiogram abnormal [Unknown]
  - Pain [Recovered/Resolved]
  - Electrocardiogram ST segment abnormal [Recovered/Resolved]
  - Productive cough [Not Recovered/Not Resolved]
  - Abdominal discomfort [Recovered/Resolved]
  - Pulmonary congestion [Not Recovered/Not Resolved]
  - Back pain [Not Recovered/Not Resolved]
  - Arthralgia [Recovered/Resolved]
  - Rash papular [Not Recovered/Not Resolved]
  - Blood creatinine increased [Not Recovered/Not Resolved]
  - Dizziness [Not Recovered/Not Resolved]
  - Cough [Not Recovered/Not Resolved]
  - Nasopharyngitis [Unknown]
  - Abdominal pain [Unknown]
  - Drug dose omission [Recovered/Resolved]
  - Metastases to liver [Not Recovered/Not Resolved]
  - Migraine [Recovered/Resolved]
  - Pruritus [Unknown]
  - Fatigue [Not Recovered/Not Resolved]
  - Diarrhoea [Recovered/Resolved]
  - Dermatitis acneiform [Recovering/Resolving]
  - Electrocardiogram QT prolonged [Not Recovered/Not Resolved]
  - Metastases to central nervous system [Not Recovered/Not Resolved]
  - Pain in extremity [Recovering/Resolving]
  - Blood pressure increased [Not Recovered/Not Resolved]
  - Rash [Not Recovered/Not Resolved]
  - Headache [Recovered/Resolved]
  - Metastases to lung [Unknown]

NARRATIVE: CASE EVENT DATE: 2012
